FAERS Safety Report 9915978 (Version 1)
Quarter: 2014Q1

REPORT INFORMATION
  Report Type: Spontaneous
  Country: US (occurrence: None)
  Receive Date: 20140219
  Receipt Date: 20140219
  Transmission Date: 20141002
  Serious: Yes (Hospitalization)
  Sender: FDA-Public Use
  Company Number: 2014P1001186

PATIENT
  Sex: 0

DRUGS (1)
  1. EPINEPHRINE [Suspect]
     Route: 058

REACTIONS (6)
  - Anxiety [None]
  - Tremor [None]
  - Palpitations [None]
  - Dyspnoea [None]
  - Incorrect dose administered [None]
  - Drug dispensing error [None]
